FAERS Safety Report 10067150 (Version 1)
Quarter: 2014Q2

REPORT INFORMATION
  Report Type: Spontaneous
  Country: US (occurrence: None)
  Receive Date: 20140408
  Receipt Date: 20140408
  Transmission Date: 20141212
  Serious: Yes (Other)
  Sender: FDA-Public Use
  Company Number: None

PATIENT
  Age: 71 Year
  Sex: Male
  Weight: 79.38 kg

DRUGS (1)
  1. VANCOMYCIN [Suspect]
     Indication: CLOSTRIDIUM DIFFICILE INFECTION
     Dosage: 4 CAPSULES TAPERED FOUR TIMES DAILY TAKEN BY MOUTH
     Route: 048

REACTIONS (3)
  - Tinnitus [None]
  - Clostridium difficile infection [None]
  - Disease recurrence [None]
